FAERS Safety Report 9015323 (Version 1)
Quarter: 2013Q1

REPORT INFORMATION
  Report Type: Spontaneous
  Country: US (occurrence: None)
  Receive Date: 20130103
  Receipt Date: 20130103
  Transmission Date: 20140127
  Serious: Yes (Hospitalization)
  Sender: FDA-Public Use
  Company Number: 2012-22910

PATIENT
  Age: 22 Year
  Sex: Female

DRUGS (3)
  1. ALBUTEROL SULFATE [Suspect]
     Indication: ASTHMA
     Route: 055
  2. FLUTICASONE PROPIONATE W/SALMETEROL XINAFOATE (FLUTICASONE PROPIONATE SALMETEROL XINAFOATE) [Concomitant]
  3. MONTELUKAST [Concomitant]

REACTIONS (4)
  - Lactic acidosis [None]
  - Dyspnoea [None]
  - Drug ineffective [None]
  - Hypertension [None]
